FAERS Safety Report 11203116 (Version 2)
Quarter: 2015Q3

REPORT INFORMATION
  Report Type: Report from Study
  Country: FR (occurrence: FR)
  Receive Date: 20150619
  Receipt Date: 20150804
  Transmission Date: 20151125
  Serious: Yes (Death, Other)
  Sender: FDA-Public Use
  Company Number: FR-GILEAD-2015-0159315

PATIENT
  Age: 73 Year
  Sex: Male
  Weight: 81 kg

DRUGS (8)
  1. SINTROM [Suspect]
     Active Substance: ACENOCOUMAROL
     Indication: ARRHYTHMIA
     Dosage: 1.25 IU, Q1WK
     Route: 048
     Dates: end: 20141127
  2. SINTROM [Suspect]
     Active Substance: ACENOCOUMAROL
     Indication: ATRIAL FIBRILLATION
  3. SOFOSBUVIR [Suspect]
     Active Substance: SOFOSBUVIR
     Indication: HEPATIC CIRRHOSIS
     Dosage: 400 MG, QD
     Route: 048
     Dates: start: 20141021, end: 201412
  4. APIDRA [Suspect]
     Active Substance: INSULIN GLULISINE
     Indication: TYPE 1 DIABETES MELLITUS
     Dosage: 300 IU, UNK
     Route: 058
     Dates: start: 2009, end: 201412
  5. OLYSIO [Suspect]
     Active Substance: SIMEPREVIR
     Indication: HEPATIC CIRRHOSIS
     Dosage: 150 MG, UNK
     Route: 048
     Dates: start: 20141021, end: 20141127
  6. CORGARD [Suspect]
     Active Substance: NADOLOL
     Indication: CARDIAC FAILURE
     Dosage: 80 MG, QD
     Route: 048
     Dates: start: 2010, end: 201412
  7. LASILIX                            /00032601/ [Suspect]
     Active Substance: FUROSEMIDE
     Indication: CARDIAC FAILURE
     Dosage: 40 MG, QD
     Route: 048
     Dates: start: 2010, end: 201412
  8. LANTUS [Suspect]
     Active Substance: INSULIN GLARGINE
     Indication: DIABETES MELLITUS
     Dosage: 22 IU, QD
     Route: 065
     Dates: start: 2014, end: 201412

REACTIONS (3)
  - Death [Fatal]
  - Asthenia [Unknown]
  - International normalised ratio abnormal [Unknown]

NARRATIVE: CASE EVENT DATE: 201412
